FAERS Safety Report 4332062-4 (Version None)
Quarter: 2004Q2

REPORT INFORMATION
  Report Type: 
  Country: None (occurrence: None)
  Receive Date: 20040401
  Receipt Date: 20040401
  Transmission Date: 20050107
  Serious: Yes (Death, Hospitalization)
  Sender: FDA-Public Use
  Company Number: None

PATIENT
  Age: 68 Year

DRUGS (1)
  1. XELODA [Suspect]
     Dosage: ORAL
     Route: 048

REACTIONS (3)
  - DIARRHOEA [None]
  - NEUTROPENIA [None]
  - STOMATITIS [None]
